FAERS Safety Report 8415329-X (Version None)
Quarter: 2012Q2

REPORT INFORMATION
  Report Type: 
  Country: None (occurrence: None)
  Receive Date: 20120606
  Receipt Date: 20120530
  Transmission Date: 20120825
  Serious: Yes (Other)
  Sender: FDA-Public Use
  Company Number: PHEH2012US011228

PATIENT
  Sex: Female

DRUGS (1)
  1. NEORAL [Suspect]
     Indication: IDIOPATHIC URTICARIA
     Dosage: 100 MG, BID
     Route: 048

REACTIONS (3)
  - URTICARIA [None]
  - PHARYNGEAL OEDEMA [None]
  - LIP SWELLING [None]
